FAERS Safety Report 5140230-7 (Version None)
Quarter: 2006Q4

REPORT INFORMATION
  Report Type: 
  Country: None (occurrence: None)
  Receive Date: 20061026
  Receipt Date: 20061026
  Transmission Date: 20070319
  Serious: Yes (Hospitalization)
  Sender: FDA-Public Use
  Company Number: None

PATIENT
  Age: 8 Year
  Sex: Male
  Weight: 27.6 kg

DRUGS (9)
  1. VINCRISTINE [Suspect]
     Indication: ACUTE LYMPHOCYTIC LEUKAEMIA
     Dosage: 1.4 MG WEEKLY IV
     Route: 042
     Dates: start: 20060829
  2. VINCRISTINE [Suspect]
     Indication: ACUTE LYMPHOCYTIC LEUKAEMIA
     Dosage: 1.4 MG WEEKLY IV
     Route: 042
     Dates: start: 20060907
  3. VINCRISTINE [Suspect]
     Indication: ACUTE LYMPHOCYTIC LEUKAEMIA
     Dosage: 1.4 MG WEEKLY IV
     Route: 042
     Dates: start: 20060913
  4. DECADRON [Concomitant]
  5. ARA-C [Concomitant]
  6. PEG ASPARAGINASE [Concomitant]
  7. METHOTREXATE [Concomitant]
  8. ZANTAC [Concomitant]
  9. BACTRIM [Concomitant]

REACTIONS (2)
  - HYPERNATRAEMIA [None]
  - HYPONATRAEMIA [None]
